FAERS Safety Report 6795283-7 (Version None)
Quarter: 2010Q2

REPORT INFORMATION
  Report Type: 
  Country: None (occurrence: None)
  Receive Date: 20100624
  Receipt Date: 20100624
  Transmission Date: 20101027
  Serious: No
  Sender: FDA-Public Use
  Company Number: None

PATIENT
  Sex: Female
  Weight: 63.5036 kg

DRUGS (1)
  1. NITROFURANTOIN MACROCRYSTALLINE [Suspect]
     Indication: CYSTITIS
     Dosage: 1 TAB TWICE DAILY
     Dates: start: 20050601, end: 20100615

REACTIONS (5)
  - CHILLS [None]
  - INSOMNIA [None]
  - MYALGIA [None]
  - NAUSEA [None]
  - TREMOR [None]
